FAERS Safety Report 24176516 (Version 1)
Quarter: 2024Q3

REPORT INFORMATION
  Report Type: Other
  Country: US (occurrence: US)
  Receive Date: 20240806
  Receipt Date: 20240806
  Transmission Date: 20241016
  Serious: No
  Sender: GLENMARK
  Company Number: US-GLENMARK PHARMACEUTICALS-2024GMK091570

PATIENT

DRUGS (1)
  1. ONDANSETRON [Suspect]
     Active Substance: ONDANSETRON
     Indication: Nausea
     Dosage: UNK, TOOK AT TWO DIFFERENT TIMES
     Route: 048

REACTIONS (3)
  - Food poisoning [Unknown]
  - Headache [Unknown]
  - Product formulation issue [Unknown]
